FAERS Safety Report 15898142 (Version 2)
Quarter: 2019Q1

REPORT INFORMATION
  Report Type: Spontaneous
  Country: PT (occurrence: PT)
  Receive Date: 20190201
  Receipt Date: 20190211
  Transmission Date: 20190417
  Serious: Yes (Hospitalization, Other)
  Sender: FDA-Public Use
  Company Number: PT-009507513-1901PRT010609

PATIENT
  Age: 71 Year
  Sex: Male

DRUGS (1)
  1. BCG LIVE [Suspect]
     Active Substance: BACILLUS CALMETTE-GUERIN SUBSTRAIN TICE LIVE ANTIGEN
     Indication: TRANSITIONAL CELL CARCINOMA
     Dosage: UNK
     Route: 043

REACTIONS (7)
  - Dyspnoea [Unknown]
  - Jaundice cholestatic [Unknown]
  - Pyrexia [Unknown]
  - Sepsis [Unknown]
  - Hypotension [Unknown]
  - Metastatic neoplasm [Unknown]
  - Rhabdomyolysis [Unknown]
